FAERS Safety Report 19396585 (Version 1)
Quarter: 2021Q2

REPORT INFORMATION
  Report Type: Report from Study
  Country: IT (occurrence: IT)
  Receive Date: 20210609
  Receipt Date: 20210609
  Transmission Date: 20210717
  Serious: Yes (Hospitalization)
  Sender: FDA-Public Use
  Company Number: IT-MYLANLABS-2021M1032366

PATIENT
  Age: 80 Year
  Sex: Female

DRUGS (10)
  1. DILATREND [Concomitant]
     Active Substance: CARVEDILOL
     Dosage: 1 DOSAGE FORM
  2. MUTABON [Concomitant]
     Active Substance: AMITRIPTYLINE HYDROCHLORIDE\PERPHENAZINE
     Dosage: UNK
  3. FOSTER                             /00500401/ [Concomitant]
     Active Substance: PIROXICAM
     Dosage: UNK
  4. LOSARTAN MYLAN [Suspect]
     Active Substance: LOSARTAN
     Indication: HYPERTENSION
     Dosage: UNK
     Dates: start: 20200101, end: 20201122
  5. XANAX [Concomitant]
     Active Substance: ALPRAZOLAM
     Dosage: 1 DOSAGE FORM
  6. CARDIOASPIRIN [Concomitant]
     Active Substance: ASPIRIN
     Dosage: 100 MILLIGRAM
  7. HALDOL [Concomitant]
     Active Substance: HALOPERIDOL
     Dosage: 2 MILLIGRAM
  8. TOTALIP [Concomitant]
     Active Substance: ATORVASTATIN
     Dosage: 1 DOSAGE FORM
  9. SPIRIVA [Concomitant]
     Active Substance: TIOTROPIUM BROMIDE MONOHYDRATE
     Dosage: UNK
  10. MINITRAN [Concomitant]
     Active Substance: NITROGLYCERIN
     Dosage: 1 DOSAGE FORM

REACTIONS (2)
  - Hypokalaemia [Not Recovered/Not Resolved]
  - Blood sodium decreased [Not Recovered/Not Resolved]

NARRATIVE: CASE EVENT DATE: 20201122
